FAERS Safety Report 12194742 (Version 1)
Quarter: 2016Q1

REPORT INFORMATION
  Report Type: Spontaneous
  Country: US (occurrence: US)
  Receive Date: 20160321
  Receipt Date: 20160321
  Transmission Date: 20160526
  Serious: No
  Sender: FDA-Public Use
  Company Number: US-TEVA-628432USA

PATIENT
  Sex: Female

DRUGS (1)
  1. MOEXIPRIL W/HYDROCHLOROTHIAZIDE [Suspect]
     Active Substance: HYDROCHLOROTHIAZIDE\MOEXIPRIL HYDROCHLORIDE
     Dosage: 7.5MG-12.5MG
     Dates: end: 201505

REACTIONS (4)
  - Lip swelling [Unknown]
  - Abdominal distension [Unknown]
  - Depression [Unknown]
  - Drug hypersensitivity [Unknown]
